FAERS Safety Report 17511349 (Version 2)
Quarter: 2023Q2

REPORT INFORMATION
  Report Type: Spontaneous
  Country: LT (occurrence: LT)
  Receive Date: 20200306
  Receipt Date: 20230504
  Transmission Date: 20230721
  Serious: Yes (Hospitalization, Other)
  Sender: FDA-Public Use
  Company Number: LT-ACCORD-170861

PATIENT
  Age: 32 Year
  Sex: Male

DRUGS (16)
  1. CLOZAPINE [Interacting]
     Active Substance: CLOZAPINE
     Indication: Schizophrenia
     Dosage: 50 MILLIGRAM
     Route: 065
  2. TACROLIMUS [Interacting]
     Active Substance: TACROLIMUS
     Indication: Immunosuppression
     Dosage: 6 MG 1 TIME PER DAY
     Route: 065
  3. MYCOPHENOLATE MOFETIL [Interacting]
     Active Substance: MYCOPHENOLATE MOFETIL
     Indication: Immunosuppression
     Dosage: 500 MG IN THE MORNING, 1000 MG IN THE EVENING
     Route: 065
  4. PALIPERIDONE [Interacting]
     Active Substance: PALIPERIDONE
     Indication: Schizophrenia
     Dosage: 100 MG PALIPERIDONE ONCE A MONTH
     Route: 065
  5. METHYLPREDNISOLONE [Interacting]
     Active Substance: METHYLPREDNISOLONE
     Indication: Immunosuppression
     Dosage: 8 MG 2 TIMES PER DAY
     Route: 065
  6. VALGANCICLOVIR HYDROCHLORIDE [Concomitant]
     Active Substance: VALGANCICLOVIR HYDROCHLORIDE
     Dosage: 450 MG 1 TIME PER DAY
     Route: 065
  7. DOXAZOSIN [Concomitant]
     Active Substance: DOXAZOSIN MESYLATE
     Dosage: 4 MG 1 TIME PER DAY
     Route: 065
  8. METOPROLOL [Concomitant]
     Active Substance: METOPROLOL
     Dosage: 150 MG DAILY
     Route: 065
  9. METOPROLOL [Concomitant]
     Active Substance: METOPROLOL
     Dosage: 47.5 MG METOPROLOL
     Route: 065
  10. OMEPRAZOLE [Concomitant]
     Active Substance: OMEPRAZOLE
     Dosage: 20 MG 1 TIME PER DAY
     Route: 065
  11. FOSINOPRIL [Concomitant]
     Active Substance: FOSINOPRIL
     Dosage: 10 MG FOSINOPRIL TWICE DAILY
     Route: 065
  12. LERCANIDIPINE [Concomitant]
     Active Substance: LERCANIDIPINE
     Dosage: 10 MG LERCANIDIPINE HYDROCHLORIDE
     Route: 065
  13. AMLODIPINE [Concomitant]
     Active Substance: AMLODIPINE BESYLATE
     Dosage: 10 MG 1 TIME PER DAY
     Route: 065
  14. ALLOPURINOL [Concomitant]
     Active Substance: ALLOPURINOL
     Dosage: 100 MG IN THE MORNING
     Route: 065
  15. TIAPRIDE HYDROCHLORIDE [Concomitant]
     Active Substance: TIAPRIDE HYDROCHLORIDE
     Dosage: 100 MG 1 TIME PER DAY
     Route: 065
  16. MOXONIDINE [Concomitant]
     Active Substance: MOXONIDINE
     Dosage: 0.4 MG 1 TIME PER DAY
     Route: 065

REACTIONS (5)
  - Loss of consciousness [Unknown]
  - Drug interaction [Unknown]
  - Paradoxical drug reaction [Unknown]
  - Asthenia [Unknown]
  - Confusional state [Unknown]
